FAERS Safety Report 11695455 (Version 2)
Quarter: 2020Q4

REPORT INFORMATION
  Report Type: Spontaneous
  Country: NL (occurrence: NL)
  Receive Date: 20151104
  Receipt Date: 20201016
  Transmission Date: 20210113
  Serious: Yes (Hospitalization, Other)
  Sender: FDA-Public Use
  Company Number: PHHY2015NL142851

PATIENT
  Age: 63 Year
  Sex: Female

DRUGS (1)
  1. DECITABINE. [Suspect]
     Active Substance: DECITABINE
     Indication: ACUTE MYELOID LEUKAEMIA
     Dosage: UNK
     Route: 065

REACTIONS (2)
  - Immune reconstitution inflammatory syndrome [Recovered/Resolved]
  - Febrile neutropenia [Recovering/Resolving]
